FAERS Safety Report 15359171 (Version 2)
Quarter: 2018Q4

REPORT INFORMATION
  Report Type: Spontaneous
  Country: NL (occurrence: NL)
  Receive Date: 20180907
  Receipt Date: 20181003
  Transmission Date: 20190204
  Serious: Yes (Death, Other)
  Sender: FDA-Public Use
  Company Number: NL-ABBVIE-18K-114-2475559-00

PATIENT
  Sex: Male
  Weight: 102 kg

DRUGS (1)
  1. VENETOCLAX. [Suspect]
     Active Substance: VENETOCLAX
     Indication: CHRONIC LYMPHOCYTIC LEUKAEMIA
     Route: 048
     Dates: start: 201804, end: 20180726

REACTIONS (6)
  - Drug ineffective [Not Recovered/Not Resolved]
  - Pulmonary embolism [Fatal]
  - Fungal infection [Unknown]
  - Bone marrow leukaemic cell infiltration [Unknown]
  - Pancytopenia [Unknown]
  - Haemorrhage intracranial [Fatal]

NARRATIVE: CASE EVENT DATE: 2018
